FAERS Safety Report 4654822-2 (Version None)
Quarter: 2005Q2

REPORT INFORMATION
  Report Type: 
  Country: None (occurrence: None)
  Receive Date: 20050506
  Receipt Date: 20050426
  Transmission Date: 20051028
  Serious: Yes (Hospitalization)
  Sender: FDA-Public Use
  Company Number: BE-BRISTOL-MYERS SQUIBB COMPANY-12947404

PATIENT
  Sex: Male
  Weight: 89 kg

DRUGS (4)
  1. ARIPIPRAZOLE [Suspect]
     Indication: PSYCHOTIC DISORDER
     Route: 048
  2. SEROQUEL [Concomitant]
     Route: 048
     Dates: start: 20050405
  3. ZYPREXA [Concomitant]
     Route: 048
     Dates: start: 20050406
  4. DIAZEPAM [Concomitant]
     Route: 048
     Dates: start: 20050405

REACTIONS (2)
  - DISORIENTATION [None]
  - IMPULSIVE BEHAVIOUR [None]
